FAERS Safety Report 7423094-8 (Version None)
Quarter: 2011Q2

REPORT INFORMATION
  Report Type: 
  Country: None (occurrence: None)
  Receive Date: 20110411
  Receipt Date: 20110401
  Transmission Date: 20111010
  Serious: Yes (Life-Threatening)
  Sender: FDA-Public Use
  Company Number: 880180

PATIENT
  Age: 43 Year
  Sex: Female
  Weight: 60 kg

DRUGS (2)
  1. GABAPENTIN [Concomitant]
  2. MITOXANTRONE HYDROCHLORIDE [Suspect]
     Indication: MULTIPLE SCLEROSIS
     Dosage: 20 MG MILLIGRAM(S), INTRAVENOUS
     Route: 042
     Dates: start: 20110127, end: 20110127

REACTIONS (1)
  - COLITIS ISCHAEMIC [None]
